FAERS Safety Report 13144055 (Version 1)
Quarter: 2017Q1

REPORT INFORMATION
  Report Type: Spontaneous
  Country: CA (occurrence: CA)
  Receive Date: 20170124
  Receipt Date: 20170124
  Transmission Date: 20170428
  Serious: Yes (Life-Threatening, Hospitalization)
  Sender: FDA-Public Use
  Company Number: CA-009507513-1701CAN009671

PATIENT
  Age: 36 Year
  Sex: Male
  Weight: 90.7 kg

DRUGS (1)
  1. JANUVIA [Suspect]
     Active Substance: SITAGLIPTIN PHOSPHATE
     Indication: TYPE 2 DIABETES MELLITUS
     Dosage: 100 MG, 1 EVERY 1 DAY
     Route: 048

REACTIONS (4)
  - Pyrexia [Recovered/Resolved]
  - Weight decreased [Recovered/Resolved]
  - Acute myocardial infarction [Recovered/Resolved]
  - Polyarthritis [Recovered/Resolved]
